FAERS Safety Report 6427051-X (Version None)
Quarter: 2009Q4

REPORT INFORMATION
  Report Type: 
  Country: None (occurrence: None)
  Receive Date: 20091029
  Receipt Date: 20091021
  Transmission Date: 20100525
  Serious: Yes (Other)
  Sender: FDA-Public Use
  Company Number: 09US004535

PATIENT
  Age: 12 Year
  Sex: Male
  Weight: 31.7 kg

DRUGS (7)
  1. IBUPROFEN 100MG JR CHEWABLE 461 [Suspect]
     Indication: HEADACHE
     Dosage: 1/4 TABLET, SINGLE, ORAL
     Route: 048
     Dates: start: 20091020, end: 20091020
  2. ADDERALL 10 [Concomitant]
  3. KLONOPIN [Concomitant]
  4. RISPERDAL [Concomitant]
  5. ZYRTEC [Concomitant]
  6. SINGULAIR [Concomitant]
  7. ADVAIR DISKUS 100/50 [Concomitant]

REACTIONS (4)
  - ANAPHYLACTIC REACTION [None]
  - DYSPHAGIA [None]
  - GLOSSODYNIA [None]
  - PARAESTHESIA [None]
